FAERS Safety Report 16776365 (Version 2)
Quarter: 2019Q3

REPORT INFORMATION
  Report Type: Spontaneous
  Country: AU (occurrence: AU)
  Receive Date: 20190905
  Receipt Date: 20190917
  Transmission Date: 20191005
  Serious: Yes (Other)
  Sender: FDA-Public Use
  Company Number: AU-PFIZER INC-2019382024

PATIENT
  Age: 38 Year
  Sex: Male

DRUGS (11)
  1. RAMIPRIL. [Suspect]
     Active Substance: RAMIPRIL
     Dosage: 2.5 MG, DAILY
     Route: 065
  2. SPIRONOLACTONE. [Suspect]
     Active Substance: SPIRONOLACTONE
     Dosage: 25 MG, DAILY
     Route: 065
  3. AMISULPRIDE [Suspect]
     Active Substance: AMISULPRIDE
     Dosage: 300 MG, DAILY
     Route: 065
  4. FUROSEMIDE. [Suspect]
     Active Substance: FUROSEMIDE
     Dosage: 20 MG, DAILY
     Route: 065
  5. MELATONIN [Suspect]
     Active Substance: MELATONIN
     Dosage: 2 MG, DAILY
     Route: 065
  6. TESTOSTERONE. [Suspect]
     Active Substance: TESTOSTERONE
     Dosage: 1 G, DAILY (EVERY 10-14 W)
     Route: 065
  7. ATORVASTATIN CALCIUM. [Suspect]
     Active Substance: ATORVASTATIN CALCIUM
     Dosage: 10 MG, DAILY
     Route: 065
  8. FERROGRAD [FERROUS SULFATE] [Suspect]
     Active Substance: FERROUS SULFATE
     Dosage: 325 MG, DAILY
     Route: 065
  9. BISOPROLOL FUMARATE. [Suspect]
     Active Substance: BISOPROLOL FUMARATE
     Dosage: 2.5 MG, DAILY
     Route: 065
  10. OMEPRAZOLE. [Suspect]
     Active Substance: OMEPRAZOLE
     Dosage: 20 MG, DAILY
     Route: 065
  11. ESCITALOPRAM OXALATE. [Suspect]
     Active Substance: ESCITALOPRAM OXALATE
     Dosage: 15 MG, DAILY
     Route: 065

REACTIONS (1)
  - Electrocardiogram QT prolonged [Unknown]
